FAERS Safety Report 7667360-X (Version None)
Quarter: 2011Q3

REPORT INFORMATION
  Report Type: 
  Country: None (occurrence: None)
  Receive Date: 20110806
  Receipt Date: 20110302
  Transmission Date: 20111222
  Serious: No
  Sender: FDA-Public Use
  Company Number: US-ABBOTT-11P-163-0708722-00

PATIENT
  Sex: Male
  Weight: 109.41 kg

DRUGS (11)
  1. LISINOPRIL [Concomitant]
     Indication: BLOOD PRESSURE
  2. CENTRUM SILVER [Concomitant]
     Indication: PRODUCT USED FOR UNKNOWN INDICATION
  3. PLAVIX [Concomitant]
     Indication: THROMBOSIS IN DEVICE
  4. NIASPAN [Suspect]
     Indication: BLOOD CHOLESTEROL
     Dates: start: 20070101, end: 20070101
  5. NIASPAN [Suspect]
     Indication: BLOOD CHOLESTEROL
     Dates: start: 20110225
  6. PLAVIX [Concomitant]
     Indication: PROPHYLAXIS
  7. ATENOLOL [Concomitant]
     Indication: BLOOD PRESSURE
  8. ASPIRIN [Concomitant]
     Indication: CARDIAC DISORDER
  9. OSTEO-BIFLEX [Concomitant]
     Indication: PRODUCT USED FOR UNKNOWN INDICATION
  10. PRAVASTATIN [Concomitant]
     Indication: BLOOD CHOLESTEROL
  11. FISH OIL [Concomitant]
     Indication: PRODUCT USED FOR UNKNOWN INDICATION

REACTIONS (1)
  - FLUSHING [None]
